FAERS Safety Report 20767622 (Version 1)
Quarter: 2022Q2

REPORT INFORMATION
  Report Type: Spontaneous
  Country: CN (occurrence: CN)
  Receive Date: 20220429
  Receipt Date: 20220429
  Transmission Date: 20220721
  Serious: Yes (Other)
  Sender: FDA-Public Use
  Company Number: CN-BAXTER-2022BAX009110

PATIENT
  Age: 66 Year
  Sex: Female

DRUGS (3)
  1. CYCLOPHOSPHAMIDE [Suspect]
     Active Substance: CYCLOPHOSPHAMIDE
     Indication: Vasculitis
     Route: 041
     Dates: start: 20220329, end: 20220405
  2. SODIUM CHLORIDE [Suspect]
     Active Substance: SODIUM CHLORIDE
     Indication: Medication dilution
     Route: 040
     Dates: start: 20220329, end: 20220405
  3. GLUTATHIONE [Concomitant]
     Active Substance: GLUTATHIONE
     Indication: Adverse event
     Dosage: GLUTATHIONE POWDER FOR INJECTION + 0.9% SODIUM CHLORIDE INJECTION
     Route: 065
     Dates: start: 20220331

REACTIONS (2)
  - Hepatic function abnormal [Recovering/Resolving]
  - Drug-induced liver injury [Unknown]

NARRATIVE: CASE EVENT DATE: 20220330
